FAERS Safety Report 8934478 (Version 1)
Quarter: 2012Q4

REPORT INFORMATION
  Report Type: 
  Country: US (occurrence: US)
  Receive Date: 20121129
  Receipt Date: 20121129
  Transmission Date: 20130627
  Serious: No
  Sender: FDA-Public Use
  Company Number: US-GLAXOSMITHKLINE-A0877024A

PATIENT
  Age: 79 Year
  Sex: Female

DRUGS (2)
  1. FLOVENT [Suspect]
     Indication: ASTHMA
     Dosage: 2PUFF Twice per day
     Route: 055
  2. MOBIC [Concomitant]

REACTIONS (3)
  - Thermal burn [Recovered/Resolved]
  - Tongue disorder [Unknown]
  - Product quality issue [Unknown]
